FAERS Safety Report 25439003 (Version 1)
Quarter: 2025Q2

REPORT INFORMATION
  Report Type: Spontaneous
  Country: US (occurrence: US)
  Receive Date: 20250616
  Receipt Date: 20250616
  Transmission Date: 20250716
  Serious: Yes (Hospitalization, Other)
  Sender: REGENERON
  Company Number: US-REGENERON PHARMACEUTICALS, INC.-2025-095836

PATIENT
  Sex: Female

DRUGS (4)
  1. PRALUENT [Suspect]
     Active Substance: ALIROCUMAB
     Indication: Blood cholesterol increased
     Dosage: 150 MG, Q2W (EVERY 2 WEEKS)
     Route: 065
     Dates: end: 202503
  2. VALSARTAN [Concomitant]
     Active Substance: VALSARTAN
     Indication: Product used for unknown indication
     Dosage: 40 MG, QD (40 MG ONCE DAILY AT THE TIME OF EVENT)
  3. VALSARTAN [Concomitant]
     Active Substance: VALSARTAN
     Dosage: 40 MG, BID (40 MG ONCE DAILY AT THE TIME OF EVENT BUT NOW TWICE A DAY)
  4. OZEMPIC [Concomitant]
     Active Substance: SEMAGLUTIDE
     Indication: Product used for unknown indication
     Dates: end: 2024

REACTIONS (8)
  - Renal failure [Recovering/Resolving]
  - Abdominal pain [Unknown]
  - Cholelithiasis [Recovered/Resolved]
  - Nausea [Unknown]
  - Illness [Unknown]
  - Decreased appetite [Unknown]
  - Abdominal distension [Recovered/Resolved]
  - Dyspnoea [Unknown]
